FAERS Safety Report 7714091-3 (Version None)
Quarter: 2011Q3

REPORT INFORMATION
  Report Type: 
  Country: None (occurrence: None)
  Receive Date: 20110828
  Receipt Date: 20110819
  Transmission Date: 20111222
  Serious: Yes (Hospitalization, Other)
  Sender: FDA-Public Use
  Company Number: US-AMGEN-USACT2011038372

PATIENT
  Age: 67 Year
  Sex: Male
  Weight: 82.7 kg

DRUGS (74)
  1. DEXAMETHASONE [Concomitant]
     Dosage: UNK UNK, UNK
     Dates: start: 20110609
  2. DOXORUBICIN HCL [Concomitant]
     Dosage: UNK UNK, UNK
     Dates: start: 20110609
  3. PLATELETS [Concomitant]
     Indication: THROMBOCYTOPENIA
     Dosage: 6 UNK, UNK
     Route: 042
     Dates: start: 20110531
  4. CEFEPIME [Concomitant]
     Indication: INFECTION
     Dosage: 2 G, UNK
     Route: 042
     Dates: start: 20110707, end: 20110710
  5. SODIUM BICARBONATE [Concomitant]
     Indication: DENTAL DISORDER PROPHYLAXIS
     Dosage: 650 MG, UNK
     Route: 048
     Dates: start: 20110531, end: 20110711
  6. LOMOTIL [Concomitant]
     Indication: DIARRHOEA
     Dosage: 205 MG, UNK
     Route: 048
     Dates: start: 20110508
  7. LEUCOVORIN CALCIUM [Concomitant]
     Dosage: 15 MG, UNK
     Route: 042
     Dates: start: 20110710, end: 20110712
  8. POTASSIUM PHOSPHATES [Concomitant]
     Indication: SUPPLEMENTATION THERAPY
     Dosage: UNK
     Route: 042
     Dates: start: 20110606
  9. PROMETHAZINE [Concomitant]
     Indication: NAUSEA
     Dosage: 12.5 MG
     Route: 042
     Dates: start: 20110531, end: 20110614
  10. HYDRALAZINE HCL [Concomitant]
     Indication: HYPERTENSION
     Dosage: 10 ML, UNK
     Route: 042
     Dates: start: 20110508, end: 20110607
  11. DEXTROMETHORPHAN W/GUAIFENESIN [Concomitant]
     Dosage: 10 MG
     Route: 048
     Dates: start: 20110508, end: 20110607
  12. TEMAZEPAM [Concomitant]
     Dosage: 15 MG
     Route: 048
     Dates: start: 20110604, end: 20110614
  13. RESTORIL [Concomitant]
     Dosage: 15 MG, UNK
     Route: 048
     Dates: start: 20110621
  14. DENOSUMAB [Suspect]
     Indication: HYPERCALCAEMIA OF MALIGNANCY
  15. METOPROLOL [Concomitant]
     Indication: HYPERTENSION
     Dosage: UNK
     Route: 048
     Dates: start: 20110531
  16. SODIUM ACETATE [Concomitant]
     Dosage: 75 MEQ, UNK
     Route: 042
     Dates: start: 20110707, end: 20110712
  17. PEPCID [Concomitant]
     Indication: REFLUX GASTRITIS
     Dosage: 20 MG, UNK
     Route: 048
     Dates: start: 20110508
  18. ROCEPHIN [Concomitant]
     Indication: INFECTION
     Dosage: 2 G
     Route: 042
     Dates: start: 20110625, end: 20110625
  19. SODIUM CHLORIDE [Concomitant]
     Route: 042
     Dates: start: 20110601, end: 20110602
  20. ZOMETA [Concomitant]
     Indication: HYPERCALCAEMIA OF MALIGNANCY
     Dosage: 3.2 MG
     Route: 042
     Dates: start: 20110514, end: 20110514
  21. VINCRISTINE [Concomitant]
     Dosage: UNK UNK, UNK
     Dates: start: 20110609
  22. SODIUM CHLORIDE [Concomitant]
     Indication: DEHYDRATION
  23. DIPHENHYDRAMINE HCL [Concomitant]
     Indication: PYREXIA
     Dosage: 25 MG
     Route: 042
     Dates: start: 20110508
  24. DEMEROL [Concomitant]
     Indication: PAIN
     Dosage: 25 MG
     Route: 042
     Dates: start: 20110519
  25. TRAMADOL HCL [Concomitant]
     Indication: PAIN
     Dosage: 50 MG, UNK
     Route: 048
     Dates: start: 20110511
  26. MAALOX PLUS [Concomitant]
     Indication: DYSPEPSIA
     Dosage: 15 UNK, UNK
     Route: 048
     Dates: start: 20110707
  27. FLAGYL [Concomitant]
     Dosage: 500 MG
     Route: 048
     Dates: start: 20110713
  28. LEVALBUTEROL HCL [Concomitant]
     Indication: DYSPNOEA
     Dosage: 0.63 MG, UNK
     Route: 050
     Dates: start: 20110725
  29. DEXTROSE WATER [Concomitant]
     Dosage: 1000 ML
     Route: 042
     Dates: start: 20110517, end: 20110614
  30. MAGNESIUM SULFATE [Concomitant]
     Indication: SUPPLEMENTATION THERAPY
     Dosage: 8 MEQ, UNK
     Route: 042
     Dates: start: 20110511, end: 20110607
  31. MIDAZOLAM HCL [Concomitant]
     Indication: ANXIETY
     Dosage: 2 MG
     Route: 048
     Dates: start: 20110517, end: 20110517
  32. HYTRIN [Concomitant]
     Indication: BENIGN PROSTATIC HYPERPLASIA
     Dosage: 10 MG, UNK
     Route: 048
     Dates: start: 20110508
  33. COLACE [Concomitant]
     Indication: CONSTIPATION
     Dosage: 100 MG, UNK
     Route: 048
     Dates: start: 20110530, end: 20110712
  34. BLOOD CELLS, PACKED HUMAN [Concomitant]
     Indication: ANAEMIA
     Dosage: UNK
     Route: 042
     Dates: start: 20110613
  35. BACTRIUM DS [Concomitant]
     Indication: INFECTION
     Dosage: UNK
     Route: 048
     Dates: start: 20110604
  36. NORVASC [Concomitant]
     Indication: HYPERTENSION
     Dosage: 5 MG, UNK
     Route: 048
     Dates: start: 20110509, end: 20110725
  37. PANTOPRAZOLE [Concomitant]
     Dosage: 40 MG, UNK
     Route: 048
     Dates: start: 20110519, end: 20110521
  38. SODIUM CHLORIDE [Concomitant]
     Route: 042
     Dates: start: 20110531, end: 20110531
  39. RITUXAN [Concomitant]
     Dosage: UNK
     Dates: start: 20110517
  40. FLUDARABINE PHOSPHATE [Concomitant]
     Dosage: UNK UNK, UNK
     Dates: start: 20110517, end: 20110609
  41. ACETAZOLAMIDE [Concomitant]
     Dosage: 250 MG, UNK
     Route: 048
     Dates: start: 20110707, end: 20110711
  42. METHYLPREDNISOLONE [Concomitant]
     Dosage: 50 MG, UNK
     Route: 042
     Dates: start: 20110707, end: 20110709
  43. SENNOSIDE [Concomitant]
     Indication: CONSTIPATION
     Dosage: UNK
     Route: 048
     Dates: start: 20110707
  44. GUAIFENESIN [Concomitant]
     Indication: COUGH
     Dosage: 5 ML, UNK
     Route: 048
     Dates: start: 20110712
  45. ALLOPURINOL [Concomitant]
     Route: 048
     Dates: start: 20110725, end: 20110728
  46. LACTOSE [Concomitant]
     Indication: CONSTIPATION
     Dosage: 30 MG
     Route: 048
     Dates: start: 20110601, end: 20110601
  47. AVELOX [Concomitant]
     Dosage: 400 MG
     Route: 048
     Dates: start: 20110609, end: 20110614
  48. ZOFRAN [Concomitant]
     Dosage: 8 MG, UNK
     Dates: start: 20110507
  49. CYCLOPHOSPHAMIDE [Concomitant]
     Dosage: UNK UNK, UNK
     Dates: start: 20110609
  50. MEGACE [Concomitant]
     Indication: DECREASED APPETITE
     Dosage: 400 MG
     Route: 048
     Dates: start: 20110707
  51. NEULASTA [Concomitant]
     Route: 058
     Dates: start: 20110712, end: 20110714
  52. COMPAZINE [Concomitant]
     Indication: NAUSEA
     Dosage: 10 MG
     Route: 048
     Dates: start: 20110608
  53. ACYCLOVIR [Concomitant]
     Indication: ANTIVIRAL PROPHYLAXIS
     Dosage: 400 MG
     Route: 048
     Dates: start: 20100719
  54. MICAFUNGIN [Concomitant]
     Indication: FUNGAL INFECTION
     Dosage: 100 MG, UNK
     Route: 042
     Dates: start: 20110520
  55. REGLAN [Concomitant]
     Indication: NAUSEA
     Dosage: 10 MG
     Route: 042
     Dates: start: 20110625, end: 20110625
  56. PREDNISOLONE [Concomitant]
     Dosage: UNK
     Route: 047
     Dates: start: 20110707, end: 20110713
  57. ACETAMINOPHEN [Concomitant]
     Indication: PYREXIA
     Dosage: 650 MG
     Dates: start: 20110507
  58. NEULASTA [Concomitant]
     Indication: FEBRILE NEUTROPENIA
     Dosage: 6 MG
     Route: 058
     Dates: start: 20110523, end: 20110523
  59. ALLOPURINOL [Concomitant]
     Dosage: 300 MG
     Route: 048
     Dates: start: 20110712, end: 20110717
  60. KLOR-CON [Concomitant]
     Indication: ELECTROLYTE SUBSTITUTION THERAPY
     Dosage: UNK MEQ, UNK
     Route: 048
     Dates: start: 20110511, end: 20110614
  61. POTASSIUM CHLORIDE [Concomitant]
     Indication: SUPPLEMENTATION THERAPY
     Route: 048
     Dates: start: 20110518, end: 20110518
  62. CIPROFLOXACIN [Concomitant]
     Route: 048
     Dates: start: 20110615
  63. PRILOSEC [Concomitant]
     Indication: GASTROOESOPHAGEAL REFLUX DISEASE
     Dosage: 40 MG, UNK
     Route: 048
     Dates: start: 20110531, end: 20110607
  64. METHOTREXATE [Concomitant]
     Dosage: UNK
     Dates: start: 20110712
  65. CYTARABINE [Concomitant]
     Dosage: UNK UNK, UNK
     Dates: start: 20110517
  66. OXALIPLATIN [Concomitant]
     Dosage: UNK UNK, UNK
     Dates: start: 20110517, end: 20110609
  67. LASIX [Concomitant]
     Indication: FLUID OVERLOAD
     Dosage: UNK UNK, UNK
     Dates: start: 20110602, end: 20110725
  68. SODIUM CHLORIDE [Concomitant]
     Indication: RENAL FAILURE
     Dosage: UNK ML, UNK
     Route: 042
     Dates: start: 20110531
  69. HYDROCORTISONE [Concomitant]
     Dosage: 25 MG
     Route: 042
     Dates: start: 20110531, end: 20110712
  70. ZITHROMAX [Concomitant]
     Indication: OROPHARYNGEAL PAIN
     Dosage: 500 MG
     Route: 048
     Dates: start: 20110713, end: 20110717
  71. LACTULOSE [Concomitant]
     Indication: CONSTIPATION
     Dosage: 15 ML
     Route: 048
     Dates: start: 20110604
  72. CIPROFLOXACIN [Concomitant]
     Dosage: 250 MG
     Route: 048
     Dates: start: 20110531, end: 20110607
  73. SODIUM CHLORIDE [Concomitant]
     Route: 042
     Dates: start: 20110603, end: 20110604
  74. MAGNESIUM CITRATE [Concomitant]
     Indication: CONSTIPATION
     Dosage: UNK
     Route: 048
     Dates: start: 20110625, end: 20110625

REACTIONS (3)
  - FAILURE TO THRIVE [None]
  - COLITIS [None]
  - DYSPNOEA [None]
